FAERS Safety Report 6368116-0 (Version None)
Quarter: 2009Q3

REPORT INFORMATION
  Report Type: 
  Country: None (occurrence: None)
  Receive Date: 20090922
  Receipt Date: 20090911
  Transmission Date: 20100115
  Serious: No
  Sender: FDA-Public Use
  Company Number: US-B.I. PHARMACEUTICALS,INC./RIDGEFIELD-2008-BP-14573BP

PATIENT
  Sex: Female

DRUGS (6)
  1. SPIRIVA [Suspect]
     Indication: EMPHYSEMA
     Dosage: 18 MCG
     Route: 048
     Dates: start: 20080201, end: 20080501
  2. SPIRIVA [Suspect]
     Dosage: 18 MCG
     Route: 048
     Dates: start: 20080901
  3. SPIRIVA [Suspect]
     Dosage: 18 MCG
     Route: 055
     Dates: start: 20090901, end: 20090901
  4. PREMARIN [Concomitant]
     Route: 048
  5. PROGESTERONE [Concomitant]
     Route: 048
  6. AZITHROMYCIN [Concomitant]
     Indication: EMPHYSEMA

REACTIONS (5)
  - ABDOMINAL PAIN UPPER [None]
  - AGEUSIA [None]
  - ANOSMIA [None]
  - ERUCTATION [None]
  - WEIGHT INCREASED [None]
